FAERS Safety Report 18735191 (Version 1)
Quarter: 2021Q1

REPORT INFORMATION
  Report Type: Spontaneous
  Country: US (occurrence: IN)
  Receive Date: 20210113
  Receipt Date: 20210113
  Transmission Date: 20210419
  Serious: Yes (Other)
  Sender: FDA-Public Use
  Company Number: US-AMNEAL PHARMACEUTICALS-2021-AMRX-00050

PATIENT
  Age: 7 Year
  Sex: Male

DRUGS (4)
  1. CEFTRIAXONE. [Concomitant]
     Active Substance: CEFTRIAXONE
     Indication: PYREXIA
     Dosage: UNK
     Route: 042
  2. ACYCLOVIR. [Suspect]
     Active Substance: ACYCLOVIR
     Indication: PYREXIA
     Dosage: 30 MILLIGRAM/KILOGRAM, DAILY
     Route: 042
  3. CEFTRIAXONE. [Concomitant]
     Active Substance: CEFTRIAXONE
     Indication: DEPRESSED LEVEL OF CONSCIOUSNESS
  4. ACYCLOVIR. [Suspect]
     Active Substance: ACYCLOVIR
     Indication: DEPRESSED LEVEL OF CONSCIOUSNESS

REACTIONS (1)
  - Crystalluria [Recovered/Resolved]
